FAERS Safety Report 6264849-5 (Version None)
Quarter: 2009Q3

REPORT INFORMATION
  Report Type: 
  Country: None (occurrence: None)
  Receive Date: 20090710
  Receipt Date: 20090702
  Transmission Date: 20100115
  Serious: Yes (Death, Hospitalization)
  Sender: FDA-Public Use
  Company Number: US-GENENTECH-286550

PATIENT
  Sex: Male

DRUGS (5)
  1. BLINDED BEVACIZUMAB [Suspect]
     Indication: PROSTATE CANCER
     Dosage: 15 MG/KG, UNK
     Route: 042
     Dates: start: 20061026, end: 20061207
  2. BLINDED PLACEBO [Suspect]
     Indication: PROSTATE CANCER
     Dosage: 15 MG/KG, UNK
     Route: 042
     Dates: start: 20061026, end: 20061207
  3. DOCETAXEL [Suspect]
     Indication: PROSTATE CANCER
     Dosage: 75 MG/M2, UNK
     Route: 042
     Dates: start: 20061026, end: 20061207
  4. PREDNISONE TAB [Suspect]
     Indication: PROSTATE CANCER
     Dosage: 5 MG, BID
     Route: 048
     Dates: start: 20061026, end: 20061207
  5. DEXAMETHASONE TAB [Suspect]
     Indication: DRUG USE FOR UNKNOWN INDICATION
     Dosage: 8 MG, UNK
     Route: 048
     Dates: start: 20061026, end: 20061207

REACTIONS (3)
  - DEATH [None]
  - MYOCARDIAL ISCHAEMIA [None]
  - RECTAL ULCER [None]
